FAERS Safety Report 17622482 (Version 3)
Quarter: 2020Q4

REPORT INFORMATION
  Report Type: Report from Study
  Country: US (occurrence: US)
  Receive Date: 20200403
  Receipt Date: 20201230
  Transmission Date: 20210113
  Serious: Yes (Other)
  Sender: FDA-Public Use
  Company Number: US-SA-2020SA082946

PATIENT

DRUGS (7)
  1. TERIFLUNOMIDE. [Suspect]
     Active Substance: TERIFLUNOMIDE
     Indication: MULTIPLE SCLEROSIS
     Dosage: 14 MG, QD
     Route: 048
     Dates: start: 20191125, end: 2019
  2. TERIFLUNOMIDE. [Suspect]
     Active Substance: TERIFLUNOMIDE
     Dosage: 14 MG, QD
     Dates: start: 201912
  3. GABAPENTIN. [Concomitant]
     Active Substance: GABAPENTIN
     Route: 065
  4. LOSARTAN. [Concomitant]
     Active Substance: LOSARTAN
     Route: 065
  5. TERIFLUNOMIDE. [Suspect]
     Active Substance: TERIFLUNOMIDE
     Dosage: 14 MG, QOW
     Route: 048
  6. MOTRIN [Concomitant]
     Active Substance: IBUPROFEN
     Route: 065
  7. AVONEX [Concomitant]
     Active Substance: INTERFERON BETA-1A
     Route: 065

REACTIONS (8)
  - Formication [Unknown]
  - Alopecia [Unknown]
  - Product use issue [Unknown]
  - Multiple sclerosis relapse [Not Recovered/Not Resolved]
  - Feeling hot [Unknown]
  - Erythema [Unknown]
  - Rash [Unknown]
  - Deafness unilateral [Not Recovered/Not Resolved]

NARRATIVE: CASE EVENT DATE: 202003
